FAERS Safety Report 5333924-1 (Version None)
Quarter: 2007Q2

REPORT INFORMATION
  Report Type: 
  Country: None (occurrence: None)
  Receive Date: 20070524
  Receipt Date: 20070516
  Transmission Date: 20071010
  Serious: Yes (Death)
  Sender: FDA-Public Use
  Company Number: JP-SANOFI-SYNTHELABO-A01200704763

PATIENT
  Age: 62 Year
  Sex: Male
  Weight: 49 kg

DRUGS (21)
  1. PREDOPA [Concomitant]
     Indication: HYPOTENSION
     Dosage: 1 DF
     Route: 042
     Dates: start: 20070425
  2. PANSPORIN [Concomitant]
     Dosage: 2 G
     Route: 042
     Dates: start: 20070425
  3. SUBVITAN [Concomitant]
     Indication: DRUG USE FOR UNKNOWN INDICATION
     Dosage: 1 DF
     Route: 065
     Dates: start: 20070424
  4. PENTAGIN [Suspect]
     Indication: ABDOMINAL PAIN
     Route: 042
     Dates: start: 20070424, end: 20070424
  5. PENTAGIN [Suspect]
     Indication: ILEUS
     Route: 042
     Dates: start: 20070424, end: 20070424
  6. ATARAX [Suspect]
     Indication: ABDOMINAL PAIN
     Route: 042
     Dates: start: 20070424, end: 20070424
  7. ATARAX [Suspect]
     Indication: ILEUS
     Route: 042
     Dates: start: 20070424, end: 20070424
  8. BUSCOPAN [Suspect]
     Indication: ABDOMINAL PAIN
     Dosage: 100 MG
     Route: 030
     Dates: start: 20070424, end: 20070425
  9. BUSCOPAN [Suspect]
     Indication: ILEUS
     Dosage: 100 MG
     Route: 030
     Dates: start: 20070424, end: 20070425
  10. ISOTONIC SODIUM CHLORIDE [Concomitant]
     Indication: DRUG USE FOR UNKNOWN INDICATION
     Dosage: 120 ML
     Route: 065
     Dates: start: 20070424, end: 20070424
  11. ISOTONIC SODIUM CHLORIDE [Concomitant]
     Dosage: 1000 ML
     Route: 065
     Dates: start: 20070426, end: 20070426
  12. ISOTONIC SODIUM CHLORIDE [Concomitant]
     Dosage: 100 ML
     Route: 065
     Dates: start: 20070427
  13. OPYSTAN [Concomitant]
     Indication: DRUG USE FOR UNKNOWN INDICATION
     Dosage: 1 DF
     Route: 065
     Dates: start: 20070424
  14. MYSLEE [Suspect]
     Indication: INSOMNIA
     Route: 048
     Dates: start: 20070426, end: 20070427
  15. LACTEC [Concomitant]
     Indication: DEHYDRATION
     Dosage: 500 ML
     Route: 042
     Dates: start: 20070424
  16. AMIGRAND [Concomitant]
     Indication: DEHYDRATION
     Dosage: 500 ML
     Route: 042
     Dates: start: 20070424
  17. VOLTAREN [Concomitant]
     Indication: ABDOMINAL PAIN
     Dosage: 50 MG
     Route: 054
     Dates: start: 20070424, end: 20070424
  18. VOLTAREN [Concomitant]
     Indication: ILEUS
     Dosage: 50 MG
     Route: 054
     Dates: start: 20070424, end: 20070424
  19. ASPARA K [Concomitant]
     Indication: HYPOKALAEMIA
     Dosage: 20 MEQ
     Route: 042
     Dates: start: 20070426, end: 20070426
  20. BFLUID [Concomitant]
     Indication: DEHYDRATION
     Dosage: 1000 ML
     Route: 042
     Dates: start: 20070426, end: 20070426
  21. BFLUID [Concomitant]
     Dosage: 1000 ML
     Route: 042
     Dates: start: 20070427

REACTIONS (3)
  - ABNORMAL BEHAVIOUR [None]
  - DELIRIUM [None]
  - FALL [None]
